FAERS Safety Report 10011453 (Version 1)
Quarter: 2014Q1

REPORT INFORMATION
  Report Type: Spontaneous
  Country: US (occurrence: None)
  Receive Date: 20140312
  Receipt Date: 20140312
  Transmission Date: 20141002
  Serious: Yes (Hospitalization, Congenital Anomaly, Other)
  Sender: FDA-Public Use
  Company Number: 2014DE0128

PATIENT
  Sex: 0

DRUGS (1)
  1. KINERET [Suspect]
     Route: 064

REACTIONS (6)
  - Congenital central nervous system anomaly [None]
  - Hypopituitarism foetal [None]
  - Hypoglycaemia [None]
  - Renal aplasia [None]
  - Foetal exposure during pregnancy [None]
  - Caesarean section [None]
